FAERS Safety Report 16233192 (Version 1)
Quarter: 2019Q2

REPORT INFORMATION
  Report Type: Spontaneous
  Country: FR (occurrence: FR)
  Receive Date: 20190424
  Receipt Date: 20190424
  Transmission Date: 20190711
  Serious: Yes (Hospitalization, Other)
  Sender: FDA-Public Use
  Company Number: FR-MYLANLABS-2019M1037451

PATIENT
  Age: 60 Year
  Sex: Male

DRUGS (2)
  1. VENLAFAXINE [Suspect]
     Active Substance: VENLAFAXINE HYDROCHLORIDE
     Dosage: WAS TAKING FOR 1 MONTH BEFORE PRESENTED TO THE NEPHROLOGY WARD
     Route: 048
  2. VENLAFAXINE [Suspect]
     Active Substance: VENLAFAXINE HYDROCHLORIDE
     Indication: PRODUCT USED FOR UNKNOWN INDICATION
     Dosage: RECEIVED AT SUPRATHERAPEUTIC DOSE FOR SEVERAL MONTHS
     Route: 065

REACTIONS (10)
  - Hypertension [Unknown]
  - Overdose [Unknown]
  - Rhabdomyolysis [Unknown]
  - Acute kidney injury [Unknown]
  - Abdominal pain [Unknown]
  - Discomfort [Unknown]
  - Physical assault [Unknown]
  - Hallucination [Unknown]
  - Confusional state [Unknown]
  - Drug abuse [Unknown]
